FAERS Safety Report 7948393-2 (Version None)
Quarter: 2011Q4

REPORT INFORMATION
  Report Type: 
  Country: None (occurrence: None)
  Receive Date: 20111130
  Receipt Date: 20111026
  Transmission Date: 20120403
  Serious: No
  Sender: FDA-Public Use
  Company Number: US-B.I. PHARMACEUTICALS,INC./RIDGEFIELD-2011-BP-26967BP

PATIENT
  Sex: Female

DRUGS (8)
  1. ALTACE [Concomitant]
     Indication: HYPERTENSION
     Dosage: 10 MG
     Route: 048
  2. ZOCOR [Concomitant]
     Indication: BLOOD CHOLESTEROL INCREASED
     Dosage: 40 MG
     Route: 048
  3. LEVOXYL [Concomitant]
     Indication: THYROID DISORDER
     Dosage: 0.5 MG
     Route: 048
  4. GLUCOTROL [Concomitant]
     Indication: DIABETES MELLITUS
     Dosage: 40 MG
     Route: 048
  5. AGGRENOX [Suspect]
     Indication: CEREBROVASCULAR ACCIDENT PROPHYLAXIS
     Route: 048
     Dates: start: 20010101
  6. ATENOLOL [Concomitant]
     Indication: HYPERTENSION
     Dosage: 12.5 MG
     Route: 048
  7. JANUVIA [Concomitant]
     Indication: DIABETES MELLITUS
     Dosage: 100 MG
     Route: 048
  8. GLUCOPHAGE [Concomitant]
     Indication: DIABETES MELLITUS
     Dosage: 2000 MG
     Route: 048

REACTIONS (1)
  - DYSPHAGIA [None]
